FAERS Safety Report 5065588-9 (Version None)
Quarter: 2006Q3

REPORT INFORMATION
  Report Type: 
  Country: None (occurrence: None)
  Receive Date: 20060714
  Receipt Date: 20060515
  Transmission Date: 20061208
  Serious: No
  Sender: FDA-Public Use
  Company Number: 2006SP002054

PATIENT
  Age: 71 Year
  Sex: Male
  Weight: 94.3482 kg

DRUGS (10)
  1. LUNESTA [Suspect]
     Indication: INSOMNIA
     Dosage: 2 MG;ORAL
     Route: 048
     Dates: start: 20060401
  2. HYDROCORTISONE [Concomitant]
  3. ARICEPT [Concomitant]
  4. AGGRENOX [Concomitant]
  5. SYNTHROID [Concomitant]
  6. LISINOPRIL [Concomitant]
  7. ZETIA [Concomitant]
  8. TRICOR [Concomitant]
  9. DETROL [Concomitant]
  10. ZANTAC [Concomitant]

REACTIONS (3)
  - DIZZINESS [None]
  - DRUG INEFFECTIVE [None]
  - MIDDLE INSOMNIA [None]
